FAERS Safety Report 5451161-7 (Version None)
Quarter: 2007Q3

REPORT INFORMATION
  Report Type: 
  Country: None (occurrence: None)
  Receive Date: 20070802
  Receipt Date: 20061004
  Transmission Date: 20080115
  Serious: Yes (Other)
  Sender: FDA-Public Use
  Company Number: 2006097126

PATIENT
  Age: 39 Year
  Sex: Female

DRUGS (2)
  1. CAMPTOSAR [Suspect]
     Indication: COLORECTAL CANCER METASTATIC
     Dosage: (360 MG), INTRAVENOUS
     Route: 042
     Dates: start: 20060803
  2. METFORMIN HCL [Concomitant]

REACTIONS (2)
  - BODY TEMPERATURE INCREASED [None]
  - CHILLS [None]
